FAERS Safety Report 9750620 (Version 1)
Quarter: 2013Q4

REPORT INFORMATION
  Report Type: Spontaneous
  Country: US (occurrence: US)
  Receive Date: 20131212
  Receipt Date: 20131212
  Transmission Date: 20140711
  Serious: No
  Sender: FDA-Public Use
  Company Number: US-BIOGENIDEC-2013BI099779

PATIENT
  Sex: Female

DRUGS (15)
  1. TECFIDERA [Suspect]
     Indication: PRODUCT USED FOR UNKNOWN INDICATION
     Route: 048
  2. TECFIDERA [Suspect]
     Indication: PRODUCT USED FOR UNKNOWN INDICATION
     Route: 048
  3. ACETAMIN [Concomitant]
  4. AMITRIPTYLIN [Concomitant]
  5. COLACE [Concomitant]
  6. SYNTHROID [Concomitant]
  7. LISINOPRIL [Concomitant]
  8. OMEGA-3 [Concomitant]
  9. SELENIUM [Concomitant]
  10. RED YEAST [Concomitant]
  11. MULTIVITAMIN [Concomitant]
  12. CALCIUM AND MAG [Concomitant]
  13. COQ-10 [Concomitant]
  14. CRANBERRY [Concomitant]
  15. PRILOSEC [Concomitant]

REACTIONS (1)
  - Flushing [Recovered/Resolved]
